FAERS Safety Report 20013663 (Version 1)
Quarter: 2021Q4

REPORT INFORMATION
  Report Type: Spontaneous
  Country: FR (occurrence: FR)
  Receive Date: 20211029
  Receipt Date: 20211029
  Transmission Date: 20220303
  Serious: Yes (Hospitalization, Other)
  Sender: FDA-Public Use
  Company Number: FR-SA-2021SA241184

PATIENT
  Age: 33 Year
  Sex: Female

DRUGS (19)
  1. LEVETIRACETAM [Suspect]
     Active Substance: LEVETIRACETAM
     Indication: Epilepsy
     Dosage: 2 DOSAGE FORM, QD
     Dates: end: 2017
  2. VALPROATE SODIUM [Suspect]
     Active Substance: VALPROATE SODIUM
     Indication: Epilepsy
     Dosage: 4 DOSAGE FORM, QD
     Dates: start: 201312
  3. VALPROATE SODIUM [Suspect]
     Active Substance: VALPROATE SODIUM
     Dosage: 4 DOSAGE FORM, QD
     Dates: start: 200909
  4. VALPROATE SODIUM [Suspect]
     Active Substance: VALPROATE SODIUM
     Dosage: 2 DOSAGE FORM, BID
     Dates: start: 20050130
  5. CLOBAZAM [Suspect]
     Active Substance: CLOBAZAM
     Indication: Epilepsy
     Dosage: UNK
     Route: 065
  6. VALPROATE SODIUM [Suspect]
     Active Substance: VALPROATE SODIUM
     Indication: Epilepsy
     Dosage: 2 DOSAGE FORM, QD
  7. VALPROATE SODIUM [Suspect]
     Active Substance: VALPROATE SODIUM
     Dosage: 3 DOSAGE FORM, QD
     Dates: start: 19810512
  8. VALPROATE SODIUM [Suspect]
     Active Substance: VALPROATE SODIUM
     Dosage: 4 DOSAGE FORM, QD
     Dates: start: 19830428
  9. VALPROATE SODIUM [Suspect]
     Active Substance: VALPROATE SODIUM
     Dosage: 40 MILLIGRAM, QD
     Dates: start: 197702
  10. VALPROATE SODIUM [Suspect]
     Active Substance: VALPROATE SODIUM
     Dosage: 3 DOSAGE FORM, QD
  11. VALPROATE SODIUM [Suspect]
     Active Substance: VALPROATE SODIUM
     Dosage: 2 DOSAGE FORM, QD
     Dates: start: 198712
  12. SABRIL [Suspect]
     Active Substance: VIGABATRIN
     Indication: Epilepsy
     Dosage: UNK
     Route: 065
  13. PHENOBARBITAL [Suspect]
     Active Substance: PHENOBARBITAL
     Indication: Epilepsy
     Dosage: 10 CENTIGRAM, QD
     Dates: start: 197702
  14. PHENOBARBITAL [Suspect]
     Active Substance: PHENOBARBITAL
     Dosage: 50 MILLIGRAM
     Dates: start: 20050130
  15. PHENOBARBITAL [Suspect]
     Active Substance: PHENOBARBITAL
     Dosage: 1 DOSAGE FORM
     Dates: start: 201312
  16. PHENOBARBITAL [Suspect]
     Active Substance: PHENOBARBITAL
     Dosage: UNK
     Dates: start: 1995
  17. PHENOBARBITAL [Suspect]
     Active Substance: PHENOBARBITAL
     Dosage: 1 DOSAGE FORM, QD
     Dates: start: 19810512
  18. VIMPAT [Concomitant]
     Active Substance: LACOSAMIDE
     Dosage: UNK
     Dates: start: 201111
  19. VALIUM [Concomitant]
     Active Substance: DIAZEPAM
     Dosage: 1 DOSAGE FORM, QD

REACTIONS (3)
  - Epilepsy [Unknown]
  - Visual impairment [Unknown]
  - Maternal exposure during pregnancy [Unknown]

NARRATIVE: CASE EVENT DATE: 20000401
